FAERS Safety Report 19065976 (Version 2)
Quarter: 2021Q3

REPORT INFORMATION
  Report Type: Report from Study
  Country: IT (occurrence: IT)
  Receive Date: 20210327
  Receipt Date: 20210810
  Transmission Date: 20211014
  Serious: Yes (Hospitalization)
  Sender: FDA-Public Use
  Company Number: IT-ACCORD-220854

PATIENT
  Age: 46 Year
  Sex: Male

DRUGS (4)
  1. LITHIUM. [Suspect]
     Active Substance: LITHIUM
     Dosage: 3 TABLETS PER DAY
  2. LORAZEPAM. [Suspect]
     Active Substance: LORAZEPAM
  3. CYMBALTA [Suspect]
     Active Substance: DULOXETINE HYDROCHLORIDE
  4. QUETIAPINE. [Suspect]
     Active Substance: QUETIAPINE
     Indication: BIPOLAR II DISORDER
     Route: 048
     Dates: start: 20201203, end: 20210110

REACTIONS (2)
  - Haemolytic anaemia [Recovered/Resolved]
  - Anaemia macrocytic [Recovered/Resolved]

NARRATIVE: CASE EVENT DATE: 20210109
